FAERS Safety Report 6918461-2 (Version None)
Quarter: 2010Q3

REPORT INFORMATION
  Report Type: 
  Country: None (occurrence: None)
  Receive Date: 20100811
  Receipt Date: 20100727
  Transmission Date: 20110219
  Serious: Yes (Other)
  Sender: FDA-Public Use
  Company Number: PT-JNJFOC-20100802467

PATIENT
  Age: 4 Year
  Sex: Female

DRUGS (1)
  1. DITROPAN [Suspect]
     Indication: URINARY INCONTINENCE
     Route: 048

REACTIONS (4)
  - ANGIOEDEMA [None]
  - GENERALISED ERYTHEMA [None]
  - HYPERTHERMIA [None]
  - PRURITUS [None]
